FAERS Safety Report 4301653-9 (Version None)
Quarter: 2004Q1

REPORT INFORMATION
  Report Type: 
  Country: None (occurrence: None)
  Receive Date: 20040223
  Receipt Date: 20040122
  Transmission Date: 20041129
  Serious: Yes (Hospitalization)
  Sender: FDA-Public Use
  Company Number: 200410248FR

PATIENT
  Age: 77 Year
  Sex: Male
  Weight: 104 kg

DRUGS (5)
  1. LASILIX RETARD [Suspect]
     Route: 048
     Dates: end: 20031121
  2. ATACAND [Suspect]
     Route: 048
     Dates: end: 20031121
  3. GINKOR [Suspect]
     Route: 048
     Dates: end: 20031121
  4. INFLUVAC [Suspect]
     Dates: start: 20031110, end: 20031110
  5. ALLOPURINOL GNR [Concomitant]
     Route: 048

REACTIONS (2)
  - RENAL FAILURE ACUTE [None]
  - RENAL VASCULITIS [None]
